FAERS Safety Report 6690155-0 (Version None)
Quarter: 2010Q2

REPORT INFORMATION
  Report Type: 
  Country: None (occurrence: None)
  Receive Date: 20100421
  Receipt Date: 20100415
  Transmission Date: 20101027
  Serious: Yes (Life-Threatening)
  Sender: FDA-Public Use
  Company Number: JP-BAYER-201011887BYL

PATIENT
  Age: 72 Year
  Sex: Male
  Weight: 59 kg

DRUGS (11)
  1. CIPROXAN-I.V. [Suspect]
     Indication: PNEUMONIA
     Dosage: TOTAL DAILY DOSE: 600 MG  UNIT DOSE: 300 MG
     Route: 041
     Dates: start: 20081231, end: 20090105
  2. SEISHOKU [Concomitant]
     Dosage: TOTAL DAILY DOSE: 200 ML
     Route: 041
     Dates: start: 20081231, end: 20090105
  3. COTRIM [Concomitant]
     Indication: PNEUMONIA
     Dosage: TOTAL DAILY DOSE: 12 G
     Route: 048
     Dates: start: 20081231, end: 20090107
  4. CLARITH [Concomitant]
     Indication: PNEUMONIA
     Dosage: TOTAL DAILY DOSE: 400 MG
     Route: 048
     Dates: start: 20090106, end: 20090107
  5. MEROPEN KIT [Concomitant]
     Indication: PNEUMONIA
     Dosage: TOTAL DAILY DOSE: 1.5 G  UNIT DOSE: 0.5 G
     Route: 042
     Dates: start: 20090106, end: 20090109
  6. ERYTHROCIN LACTOBIONATE [Concomitant]
     Indication: PNEUMONIA
     Dosage: TOTAL DAILY DOSE: 1500 MG
     Route: 042
     Dates: start: 20090107, end: 20090109
  7. ALENDRONATE SODIUM [Concomitant]
     Dosage: UNIT DOSE: 35 MG
     Route: 048
     Dates: start: 20071215, end: 20090106
  8. PARIET [Concomitant]
     Route: 048
     Dates: start: 20071230, end: 20090106
  9. SOLU-MEDROL [Concomitant]
     Dosage: TOTAL DAILY DOSE: 250 MG
     Route: 042
     Dates: start: 20081231, end: 20090102
  10. SOLU-MEDROL [Concomitant]
     Dosage: TOTAL DAILY DOSE: 1 G
     Route: 042
     Dates: start: 20090108, end: 20090109
  11. PREDONINE [Concomitant]
     Dosage: TOTAL DAILY DOSE: 60 MG
     Route: 042
     Dates: start: 20090103

REACTIONS (3)
  - ALANINE AMINOTRANSFERASE INCREASED [None]
  - BLOOD ALKALINE PHOSPHATASE INCREASED [None]
  - GAMMA-GLUTAMYLTRANSFERASE INCREASED [None]
